FAERS Safety Report 5354835-1 (Version None)
Quarter: 2007Q2

REPORT INFORMATION
  Report Type: 
  Country: None (occurrence: None)
  Receive Date: 20070611
  Receipt Date: 20070530
  Transmission Date: 20071010
  Serious: Yes (Hospitalization)
  Sender: FDA-Public Use
  Company Number: TPA2007A01078

PATIENT
  Age: 73 Year
  Sex: Female

DRUGS (12)
  1. PIOGLITAZONE HCL [Suspect]
     Indication: CARDIOVASCULAR EVENT PROPHYLAXIS
     Dosage: 45 MG, 1 IN 1 D, PER ORAL
     Route: 048
  2. PIOGLITAZONE HCL [Suspect]
     Indication: CEREBROVASCULAR ACCIDENT PROPHYLAXIS
     Dosage: 45 MG, 1 IN 1 D, PER ORAL
     Route: 048
  3. ASPIRIN [Concomitant]
  4. FOSAMAX [Concomitant]
  5. PLAVIX [Concomitant]
  6. SYNTHROID [Concomitant]
  7. REMERON [Concomitant]
  8. LIPITOR [Concomitant]
  9. OXYCODONE HCL [Concomitant]
  10. CALCIUM                     (CALCIUM) [Concomitant]
  11. SKELAXIN [Concomitant]
  12. DEPAKOTE [Concomitant]

REACTIONS (1)
  - COMPRESSION FRACTURE [None]
